FAERS Safety Report 17229314 (Version 4)
Quarter: 2020Q1

REPORT INFORMATION
  Report Type: Spontaneous
  Country: AR (occurrence: AR)
  Receive Date: 20200103
  Receipt Date: 20200212
  Transmission Date: 20200409
  Serious: Yes (Hospitalization)
  Sender: FDA-Public Use
  Company Number: AR-PUMA BIOTECHNOLOGY, LTD.-2019AR012171

PATIENT

DRUGS (5)
  1. VILTAR [Concomitant]
     Indication: PROPHYLAXIS AGAINST DIARRHOEA
     Dosage: 4 MG, EVERY 8 HOURS
     Dates: end: 20191222
  2. SUPRASEC [Concomitant]
     Indication: PROPHYLAXIS AGAINST DIARRHOEA
     Dosage: UNK
     Dates: start: 20191223
  3. SUCRALFATE. [Concomitant]
     Active Substance: SUCRALFATE
     Indication: PRODUCT USED FOR UNKNOWN INDICATION
     Dosage: 5 MG AT LUNCH AND DINNER
  4. VALSARTAN. [Concomitant]
     Active Substance: VALSARTAN
     Indication: HYPERTENSION
     Dosage: 80 MG
  5. NERLYNX [Suspect]
     Active Substance: NERATINIB
     Indication: BREAST CANCER
     Dosage: 240 MG, DAILY
     Route: 048
     Dates: start: 20191218, end: 20191225

REACTIONS (9)
  - Oliguria [Unknown]
  - Dehydration [Unknown]
  - Vomiting [Not Recovered/Not Resolved]
  - Diarrhoea [Not Recovered/Not Resolved]
  - Decreased appetite [Unknown]
  - Drug intolerance [Unknown]
  - Asthenia [Unknown]
  - Hypotension [Unknown]
  - Nausea [Unknown]

NARRATIVE: CASE EVENT DATE: 20191219
